FAERS Safety Report 22223339 (Version 3)
Quarter: 2023Q2

REPORT INFORMATION
  Report Type: Report from Study
  Country: DE (occurrence: DE)
  Receive Date: 20230418
  Receipt Date: 20230607
  Transmission Date: 20230721
  Serious: Yes (Hospitalization, Other)
  Sender: FDA-Public Use
  Company Number: DE-002147023-NVSC2023DE087646

PATIENT
  Sex: Male
  Weight: 93 kg

DRUGS (3)
  1. MAYZENT [Suspect]
     Active Substance: SIPONIMOD
     Indication: Secondary progressive multiple sclerosis
     Dosage: 2 MG, QD
     Route: 048
     Dates: start: 20220307, end: 20220427
  2. MAYZENT [Suspect]
     Active Substance: SIPONIMOD
     Dosage: 2 MG, EVERY 2 DAYS
     Route: 048
     Dates: start: 20220428, end: 20220626
  3. MAYZENT [Suspect]
     Active Substance: SIPONIMOD
     Dosage: 1 MG, QD
     Route: 048
     Dates: start: 20220627

REACTIONS (8)
  - Transient ischaemic attack [Recovered/Resolved with Sequelae]
  - Aphasia [Recovered/Resolved]
  - Dysarthria [Unknown]
  - Aortic arteriosclerosis [Not Recovered/Not Resolved]
  - Left atrial dilatation [Unknown]
  - Microangiopathy [Unknown]
  - Benign enlargement of the subarachnoid spaces [Unknown]
  - Left ventricular hypertrophy [Unknown]

NARRATIVE: CASE EVENT DATE: 20220718
